FAERS Safety Report 17257342 (Version 1)
Quarter: 2020Q1

REPORT INFORMATION
  Report Type: Spontaneous
  Country: US (occurrence: US)
  Receive Date: 20200109
  Receipt Date: 20200109
  Transmission Date: 20200409
  Serious: No
  Sender: FDA-Public Use
  Company Number: None

PATIENT
  Sex: Male

DRUGS (2)
  1. METOPROLOL 25MG [Suspect]
     Active Substance: METOPROLOL
  2. COREG [Suspect]
     Active Substance: CARVEDILOL

REACTIONS (2)
  - Drug ineffective [None]
  - Hypotension [None]
